FAERS Safety Report 8384019-4 (Version None)
Quarter: 2012Q1

REPORT INFORMATION
  Report Type: 
  Country: None (occurrence: None)
  Receive Date: 20120323
  Receipt Date: 20110504
  Transmission Date: 20120608
  Serious: Yes (Other)
  Sender: FDA-Public Use
  Company Number: 163-21880-11030821

PATIENT
  Age: 60 Year
  Sex: Female

DRUGS (12)
  1. B COMPLEX ELX [Concomitant]
  2. AUGMENTIN '125' [Concomitant]
  3. ACYCLOVIR [Concomitant]
  4. NORVASC [Concomitant]
  5. MULTIVITAMIN [Concomitant]
  6. DICLOFENAC SODIUM [Concomitant]
  7. REVLIMID [Suspect]
     Indication: MULTIPLE MYELOMA
     Dosage: 10 MG, 1 IN 1 D, PO
     Route: 048
     Dates: start: 20101215, end: 20110218
  8. PRILOSEC [Concomitant]
  9. BIAXIN XL [Concomitant]
  10. TUSSIN DM (TUSSIN DM) [Concomitant]
  11. ZOMETA [Concomitant]
  12. COMBIVENT [Concomitant]

REACTIONS (1)
  - GRANULOCYTE COUNT DECREASED [None]
